FAERS Safety Report 18078801 (Version 1)
Quarter: 2020Q3

REPORT INFORMATION
  Report Type: Spontaneous
  Country: US (occurrence: US)
  Receive Date: 20200728
  Receipt Date: 20200728
  Transmission Date: 20201103
  Serious: No
  Sender: FDA-Public Use
  Company Number: US-GLENMARK PHARMACEUTICALS-2019GMK043985

PATIENT

DRUGS (2)
  1. MUPIROCIN OINTMENT USP, 2% [Suspect]
     Active Substance: MUPIROCIN
     Indication: STAPHYLOCOCCAL INFECTION
     Dosage: UNK, TID
     Route: 045
     Dates: start: 20191004, end: 20191014
  2. NYSTATIN. [Concomitant]
     Active Substance: NYSTATIN
     Indication: EAR INFECTION FUNGAL
     Dosage: UNK
     Route: 065

REACTIONS (11)
  - Oral candidiasis [Not Recovered/Not Resolved]
  - Tooth abscess [Unknown]
  - Pyrexia [Unknown]
  - Gingival ulceration [Unknown]
  - Gingival abscess [Unknown]
  - Gingival bleeding [Not Recovered/Not Resolved]
  - Product use in unapproved indication [Unknown]
  - Incorrect route of product administration [Unknown]
  - Application site pain [Unknown]
  - Gingival swelling [Not Recovered/Not Resolved]
  - Gingivitis [Not Recovered/Not Resolved]

NARRATIVE: CASE EVENT DATE: 201910
